FAERS Safety Report 8963302 (Version 6)
Quarter: 2013Q4

REPORT INFORMATION
  Report Type: Report from Study
  Country: JP (occurrence: JP)
  Receive Date: 20121214
  Receipt Date: 20131227
  Transmission Date: 20140711
  Serious: Yes (Hospitalization, Other)
  Sender: FDA-Public Use
  Company Number: JP-VERTEX PHARMACEUTICALS INC.-2012-026141

PATIENT
  Age: 71 Year
  Sex: Female

DRUGS (22)
  1. VX-950 (TELAPREVIR) [Suspect]
     Indication: CHRONIC HEPATITIS C
     Dosage: 1500 MG, QD
     Route: 048
     Dates: start: 20120903, end: 20121029
  2. REBETOL [Suspect]
     Indication: CHRONIC HEPATITIS C
     Dosage: 800 MG, QD
     Route: 048
     Dates: start: 20120903, end: 20120920
  3. REBETOL [Suspect]
     Dosage: 600 MG, QD
     Route: 048
     Dates: start: 20120921, end: 20120923
  4. REBETOL [Suspect]
     Dosage: 400 MG, QD
     Route: 048
     Dates: start: 20120924, end: 20121008
  5. REBETOL [Suspect]
     Dosage: 400 MG, QOD
     Route: 048
     Dates: start: 20121009, end: 20121013
  6. REBETOL [Suspect]
     Dosage: 200 MG, QOD
     Route: 048
     Dates: start: 20121010, end: 20121014
  7. REBETOL [Suspect]
     Dosage: 400 MG, QOD
     Route: 048
     Dates: start: 20121015, end: 20121020
  8. REBETOL [Suspect]
     Dosage: 600 MG, QOD
     Route: 048
     Dates: start: 20121016, end: 20121021
  9. REBETOL [Suspect]
     Dosage: 200 MG, QD
     Route: 048
     Dates: start: 20121022, end: 20121029
  10. REBETOL [Suspect]
     Dosage: 200 MG, QD
     Route: 048
     Dates: start: 20121105, end: 20121106
  11. REBETOL [Suspect]
     Dosage: 200 MG, QD
     Route: 048
     Dates: start: 20121107, end: 20121109
  12. REBETOL [Suspect]
     Dosage: 200 MG, QOD
     Route: 048
     Dates: start: 20121210, end: 20121216
  13. REBETOL [Suspect]
     Dosage: 200 MG, QD
     Route: 048
     Dates: start: 20121217
  14. PEGINTRON [Suspect]
     Indication: CHRONIC HEPATITIS C
     Dosage: 100 ?G, QW
     Route: 058
     Dates: start: 20120903, end: 20121105
  15. PEGINTRON [Suspect]
     Dosage: 100 ?G, QW
     Route: 058
     Dates: start: 20121119
  16. TEOFURMATE [Concomitant]
     Dosage: 400 MG, QD
     Route: 048
  17. ANTOBRON [Concomitant]
     Dosage: 45 MG, QD
     Route: 048
  18. QVAR [Concomitant]
     Dosage: 200 ?G, QD
     Route: 055
  19. TALION [Concomitant]
     Dosage: 20 MG, QD
     Route: 048
     Dates: start: 20120903
  20. RIKKUNSHITO [Concomitant]
     Dosage: 7.5 G, QD
     Route: 048
     Dates: start: 20120903, end: 20121202
  21. SEREVENT [Concomitant]
     Dosage: 100 ?G, QD
     Route: 055
     Dates: start: 20121029, end: 20121127
  22. PARIET [Concomitant]
     Dosage: 10 MG, QD
     Route: 048
     Dates: start: 20121113, end: 20121118

REACTIONS (2)
  - Loss of consciousness [Recovered/Resolved]
  - Haemoglobin decreased [Recovered/Resolved]
